FAERS Safety Report 4636672-6 (Version None)
Quarter: 2005Q2

REPORT INFORMATION
  Report Type: 
  Country: None (occurrence: None)
  Receive Date: 20050328
  Receipt Date: 20041208
  Transmission Date: 20051028
  Serious: No
  Sender: FDA-Public Use
  Company Number: USA041285589

PATIENT
  Age: 5 Year
  Sex: Male
  Weight: 28 kg

DRUGS (2)
  1. STRATTERA [Suspect]
     Indication: ATTENTION DEFICIT/HYPERACTIVITY DISORDER
     Dosage: 18 MG/1 IN THE EVENING
     Dates: start: 20041208
  2. RITALIN [Concomitant]

REACTIONS (2)
  - MALAISE [None]
  - VOMITING [None]
